FAERS Safety Report 6379224-2 (Version None)
Quarter: 2009Q3

REPORT INFORMATION
  Report Type: 
  Country: None (occurrence: None)
  Receive Date: 20090923
  Receipt Date: 20090923
  Transmission Date: 20100115
  Serious: Yes (Life-Threatening, Hospitalization)
  Sender: FDA-Public Use
  Company Number: None

PATIENT
  Age: 34 Year
  Sex: Female
  Weight: 58.9676 kg

DRUGS (2)
  1. NEURONTIN [Suspect]
     Indication: BIPOLAR DISORDER
     Dosage: 3 DAILY PO
     Route: 048
     Dates: start: 20090515, end: 20090813
  2. NEURONTIN [Suspect]
     Indication: MYALGIA
     Dosage: 3 DAILY PO
     Route: 048
     Dates: start: 20090515, end: 20090813

REACTIONS (11)
  - ABNORMAL BEHAVIOUR [None]
  - AGGRESSION [None]
  - AGITATION [None]
  - HIGH RISK SEXUAL BEHAVIOUR [None]
  - HOSTILITY [None]
  - MOOD SWINGS [None]
  - OFF LABEL USE [None]
  - PARADOXICAL DRUG REACTION [None]
  - PERSONALITY CHANGE [None]
  - SUICIDE ATTEMPT [None]
  - THINKING ABNORMAL [None]
